FAERS Safety Report 4820801-5 (Version None)
Quarter: 2005Q4

REPORT INFORMATION
  Report Type: 
  Country: None (occurrence: None)
  Receive Date: 20051104
  Receipt Date: 20051028
  Transmission Date: 20060501
  Serious: Yes (Other)
  Sender: FDA-Public Use
  Company Number: US-JNJFOC-20051100632

PATIENT
  Sex: Female
  Weight: 70.76 kg

DRUGS (3)
  1. DURAGESIC-100 [Suspect]
     Route: 062
  2. VICODIN [Concomitant]
  3. VICODIN [Concomitant]
     Indication: PAIN

REACTIONS (8)
  - AGITATION [None]
  - CONFUSIONAL STATE [None]
  - FALL [None]
  - HIP FRACTURE [None]
  - HYPERHIDROSIS [None]
  - INSOMNIA [None]
  - NAUSEA [None]
  - VOMITING [None]
